FAERS Safety Report 15756678 (Version 1)
Quarter: 2018Q4

REPORT INFORMATION
  Report Type: Spontaneous
  Country: US (occurrence: US)
  Receive Date: 20181224
  Receipt Date: 20181224
  Transmission Date: 20190205
  Serious: No
  Sender: FDA-Public Use
  Company Number: US-009507513-1812USA005882

PATIENT
  Sex: Female

DRUGS (2)
  1. ASMANEX [Suspect]
     Active Substance: MOMETASONE FUROATE
  2. ASMANEX [Suspect]
     Active Substance: MOMETASONE FUROATE

REACTIONS (2)
  - Product availability issue [Not Recovered/Not Resolved]
  - Feeling abnormal [Not Recovered/Not Resolved]
